FAERS Safety Report 4291808-4 (Version None)
Quarter: 2004Q1

REPORT INFORMATION
  Report Type: 
  Country: None (occurrence: None)
  Receive Date: 20040211
  Receipt Date: 20030519
  Transmission Date: 20041129
  Serious: No
  Sender: FDA-Public Use
  Company Number: US-GLAXOSMITHKLINE-A0409031A

PATIENT
  Age: 52 Year
  Sex: Female

DRUGS (1)
  1. IMITREX [Suspect]
     Dosage: 6MG AS REQUIRED
     Route: 058
     Dates: start: 20010101

REACTIONS (3)
  - DRUG INEFFECTIVE [None]
  - INJECTION SITE STINGING [None]
  - PHARMACEUTICAL PRODUCT COMPLAINT [None]
